FAERS Safety Report 18477055 (Version 1)
Quarter: 2020Q4

REPORT INFORMATION
  Report Type: Spontaneous
  Country: US (occurrence: US)
  Receive Date: 20201107
  Receipt Date: 20201107
  Transmission Date: 20210114
  Serious: Yes (Death, Life-Threatening, Hospitalization, Other)
  Sender: FDA-Public Use
  Company Number: US-APOTEX-2020AP020812

PATIENT
  Age: 62 Year
  Sex: Male
  Weight: 74.7 kg

DRUGS (26)
  1. CYTARABINE. [Suspect]
     Active Substance: CYTARABINE
     Indication: B-CELL LYMPHOMA
     Dosage: 750 MILLIGRAM, BID
     Route: 042
     Dates: start: 20200110, end: 20200113
  2. VIALEBEX [Concomitant]
     Active Substance: ALBUMIN HUMAN
     Dosage: 20 GRAM, QD
     Route: 042
     Dates: start: 20200130, end: 20200130
  3. LEDERFOLINE [Concomitant]
     Active Substance: LEUCOVORIN CALCIUM
     Indication: PROPHYLAXIS
     Dosage: 25 MILLIGRAM, Q.WK.
     Route: 065
     Dates: start: 20191011
  4. PANTOPRAZOLE [Concomitant]
     Active Substance: PANTOPRAZOLE
     Indication: GASTRITIS PROPHYLAXIS
     Dosage: 20 MILLIGRAM, QD
     Route: 048
     Dates: start: 20200108
  5. ZARZIO [Concomitant]
     Active Substance: FILGRASTIM
     Indication: PROPHYLAXIS
     Dosage: UNK
     Route: 058
     Dates: start: 20200123
  6. MORPHINE [Concomitant]
     Active Substance: MORPHINE
     Indication: STOMATITIS
     Dosage: 24 MILLIGRAM, QD
     Route: 042
     Dates: start: 20200121, end: 20200122
  7. PROCAINE [Concomitant]
     Active Substance: PROCAINE
     Indication: STOMATITIS
     Dosage: UNK UNK, PRN
     Route: 065
     Dates: start: 20200118
  8. MELPHALAN. [Suspect]
     Active Substance: MELPHALAN
     Indication: B-CELL LYMPHOMA
     Dosage: 260 MILLIGRAM, SINGLE
     Route: 042
     Dates: start: 20200114, end: 20200114
  9. VALACICLOVIR [Concomitant]
     Active Substance: VALACYCLOVIR HYDROCHLORIDE
     Indication: ANTIVIRAL PROPHYLAXIS
     Dosage: 1000 MILLIGRAM, BID
     Route: 065
     Dates: start: 20191011
  10. METHYLPREDNISOLONE. [Concomitant]
     Active Substance: METHYLPREDNISOLONE
     Indication: STOMATITIS
     Dosage: UNK UNK, PRN
     Route: 065
     Dates: start: 20200118
  11. VIALEBEX [Concomitant]
     Active Substance: ALBUMIN HUMAN
     Indication: SEPSIS
     Dosage: 40 GRAM, BID
     Route: 042
     Dates: start: 20200124, end: 20200124
  12. VIALEBEX [Concomitant]
     Active Substance: ALBUMIN HUMAN
     Dosage: 60 GRAM, TID
     Route: 042
     Dates: start: 20200127, end: 20200127
  13. ETOPOSIDE. [Suspect]
     Active Substance: ETOPOSIDE
     Dosage: 375 MILLIGRAM, BID
     Route: 042
     Dates: start: 20200110, end: 20200113
  14. IFOSFAMIDE. [Concomitant]
     Active Substance: IFOSFAMIDE
     Indication: B-CELL LYMPHOMA
     Dosage: 8800 MILLIGRAM, DAY 2 OF EVERY CYCLE
     Route: 042
     Dates: start: 20191101, end: 20191213
  15. PAROEX [Concomitant]
     Active Substance: CHLORHEXIDINE GLUCONATE
     Indication: PROPHYLAXIS
     Dosage: 1BDB, PRN
     Route: 065
  16. FLUCONAZOLE. [Concomitant]
     Active Substance: FLUCONAZOLE
     Indication: PROPHYLAXIS
     Dosage: 200 MILLIGRAM, QD
     Route: 048
     Dates: start: 20200109
  17. TRAMADOL. [Concomitant]
     Active Substance: TRAMADOL
     Indication: STOMATITIS
     Dosage: 50 MILLIGRAM, QD
     Route: 042
     Dates: start: 20200120, end: 20200121
  18. PARACETAMOL [Concomitant]
     Active Substance: ACETAMINOPHEN
     Indication: FEBRILE NEUTROPENIA
     Dosage: 1000 MILLIGRAM, QD
     Route: 042
     Dates: start: 20200121, end: 20200122
  19. ETOPOSIDE. [Suspect]
     Active Substance: ETOPOSIDE
     Indication: B-CELL LYMPHOMA
     Dosage: 180 MILLIGRAM, DAYS 1, 2 AND 3  OF 21 DAY CYCLE
     Route: 042
     Dates: start: 20191031, end: 20191213
  20. RITUXIMAB. [Concomitant]
     Active Substance: RITUXIMAB
     Indication: B-CELL LYMPHOMA
     Dosage: 660 MILLIGRAM, DAY 1 OF EVERY CYCLE
     Route: 042
     Dates: start: 20191031, end: 20191211
  21. BACTRIM [Concomitant]
     Active Substance: SULFAMETHOXAZOLE\TRIMETHOPRIM
     Indication: INFECTION PROPHYLAXIS
     Dosage: 3 DOSAGE FORM, Q.3W
     Route: 065
     Dates: start: 20191011
  22. ACUPAN [Concomitant]
     Active Substance: NEFOPAM HYDROCHLORIDE
     Indication: STOMATITIS
     Dosage: 20 MILLIGRAM, QD
     Route: 042
     Dates: start: 20200120, end: 20200122
  23. VIALEBEX [Concomitant]
     Active Substance: ALBUMIN HUMAN
     Dosage: 40 GRAM, BID
     Route: 042
     Dates: start: 20200128, end: 20200128
  24. CARMUSTINE. [Suspect]
     Active Substance: CARMUSTINE
     Indication: B-CELL LYMPHOMA
     Dosage: 560 MILLIGRAM, QD
     Route: 042
     Dates: start: 20200109, end: 20200109
  25. CARBOPLATIN. [Concomitant]
     Active Substance: CARBOPLATIN
     Indication: B-CELL LYMPHOMA
     Dosage: 650 MILLIGRAM, DAY 1 OF EVERY CYCLE
     Route: 042
     Dates: start: 20191101, end: 20191212
  26. SODIUM BICARBONATE. [Concomitant]
     Active Substance: SODIUM BICARBONATE
     Indication: PROPHYLAXIS
     Dosage: 1 BDB, PRN
     Route: 065
     Dates: start: 20191103

REACTIONS (2)
  - Pneumonia pseudomonal [Not Recovered/Not Resolved]
  - Lung disorder [Not Recovered/Not Resolved]

NARRATIVE: CASE EVENT DATE: 20200123
